FAERS Safety Report 23078589 (Version 1)
Quarter: 2023Q4

REPORT INFORMATION
  Report Type: Spontaneous
  Country: JP (occurrence: JP)
  Receive Date: 20231018
  Receipt Date: 20231018
  Transmission Date: 20240110
  Serious: Yes (Death, Other)
  Sender: FDA-Public Use
  Company Number: JP-GILEAD-2023-0647566

PATIENT
  Age: 55 Year
  Sex: Male

DRUGS (8)
  1. VEKLURY [Suspect]
     Active Substance: REMDESIVIR
     Indication: COVID-19
     Dosage: 200 MG, QD
     Route: 042
     Dates: start: 20230804, end: 20230804
  2. VEKLURY [Suspect]
     Active Substance: REMDESIVIR
     Dosage: 100 MG, QD
     Route: 042
     Dates: start: 20230805, end: 20230813
  3. VEKLURY [Suspect]
     Active Substance: REMDESIVIR
     Dosage: 200 MG, QD
     Route: 042
     Dates: start: 20230824, end: 20230824
  4. VEKLURY [Suspect]
     Active Substance: REMDESIVIR
     Dosage: 100 MG, QD
     Route: 042
     Dates: start: 20230825, end: 20230901
  5. VEKLURY [Suspect]
     Active Substance: REMDESIVIR
     Dosage: 200 MG, QD
     Route: 042
     Dates: start: 20230906, end: 20230906
  6. VEKLURY [Suspect]
     Active Substance: REMDESIVIR
     Dosage: 100 MG, QD
     Route: 042
     Dates: start: 20230907, end: 20230915
  7. METHYLPREDNISOLONE [Concomitant]
     Active Substance: METHYLPREDNISOLONE
     Dosage: UNK
     Dates: start: 20230804, end: 20230813
  8. OLUMIANT [Concomitant]
     Active Substance: BARICITINIB
     Dosage: 4 MG
     Dates: start: 20230805, end: 20230818

REACTIONS (5)
  - Death [Fatal]
  - Cytomegalovirus infection [Unknown]
  - COVID-19 [Not Recovered/Not Resolved]
  - Off label use [Recovered/Resolved]
  - Off label use [Recovered/Resolved]

NARRATIVE: CASE EVENT DATE: 20230801
